FAERS Safety Report 23305642 (Version 1)
Quarter: 2023Q4

REPORT INFORMATION
  Report Type: Spontaneous
  Country: CN (occurrence: CN)
  Receive Date: 20231218
  Receipt Date: 20231218
  Transmission Date: 20240110
  Serious: Yes (Hospitalization)
  Sender: FDA-Public Use
  Company Number: None

PATIENT
  Age: 78 Year
  Sex: Female
  Weight: 60 kg

DRUGS (1)
  1. MANNITOL [Suspect]
     Active Substance: MANNITOL
     Indication: Intracranial pressure increased
     Dosage: (DOSAGE FORM: INJECTION) 100 ML 3 TIMES DAILY (ONCE EVERY 8 HOURS)
     Route: 041
     Dates: start: 20231031, end: 20231108

REACTIONS (1)
  - Hypernatraemia [Recovering/Resolving]

NARRATIVE: CASE EVENT DATE: 20231104
